FAERS Safety Report 7637843-7 (Version None)
Quarter: 2011Q3

REPORT INFORMATION
  Report Type: 
  Country: None (occurrence: None)
  Receive Date: 20110713
  Receipt Date: 20110706
  Transmission Date: 20111222
  Serious: Yes (Other)
  Sender: FDA-Public Use
  Company Number: 2010027079

PATIENT
  Age: 56 Year
  Sex: Female
  Weight: 47.6277 kg

DRUGS (24)
  1. ALBUTEROL SULFATE [Concomitant]
  2. HIZENTRA [Suspect]
     Indication: IMMUNODEFICIENCY COMMON VARIABLE
     Dosage: (13 G 1X/WEEK, 65 ML WEEKLY IN 5 SITES OVER 1.5 - 2 HOURS SUBCUTANEOUS),
     Route: 058
     Dates: start: 20101201
  3. HIZENTRA [Suspect]
     Indication: IMMUNODEFICIENCY COMMON VARIABLE
     Dosage: (13 G 1X/WEEK, 65 ML WEEKLY IN 5 SITES OVER 1.5 - 2 HOURS SUBCUTANEOUS),
     Route: 058
     Dates: start: 20110630
  4. HIZENTRA [Suspect]
     Indication: IMMUNODEFICIENCY COMMON VARIABLE
     Dosage: (13 G 1X/WEEK, 65 ML WEEKLY IN 5 SITES OVER 1.5 - 2 HOURS SUBCUTANEOUS),
     Route: 058
     Dates: start: 20110630
  5. FORTEO [Concomitant]
  6. VICODIN [Concomitant]
  7. FLONASE [Concomitant]
  8. PREDNISONE [Concomitant]
  9. DUONEB [Suspect]
  10. CALCIUM WITH VITAMIN D (CALCIUM WITH VITAMIN D) [Concomitant]
  11. PULMICORT [Concomitant]
  12. THEOPHYLLINE [Concomitant]
  13. LEVAQUIN [Concomitant]
  14. HIZENTRA [Suspect]
  15. HIZENTRA [Suspect]
  16. HIZENTRA [Suspect]
  17. COUMADIN [Concomitant]
  18. PROVENTIL [Suspect]
  19. HIZENTRA [Suspect]
  20. PHENOBARBITAL TAB [Concomitant]
  21. OMEPRAZOLE [Concomitant]
  22. MUCINEX [Concomitant]
  23. PHENYTOIN [Concomitant]
  24. AUGMENTIN (AUGMENTIN /00756801/) [Concomitant]

REACTIONS (4)
  - INFUSION SITE IRRITATION [None]
  - BRONCHITIS [None]
  - LUNG INFECTION [None]
  - HEADACHE [None]
